FAERS Safety Report 6861992-4 (Version None)
Quarter: 2010Q3

REPORT INFORMATION
  Report Type: 
  Country: None (occurrence: None)
  Receive Date: 20100721
  Receipt Date: 20100706
  Transmission Date: 20110219
  Serious: Yes (Hospitalization)
  Sender: FDA-Public Use
  Company Number: PHHY2010US44590

PATIENT
  Age: 9 Year
  Sex: Female
  Weight: 10 kg

DRUGS (20)
  1. MYFORTIC [Suspect]
     Indication: RENAL TRANSPLANT
     Dosage: 360 MG, DAILY
     Route: 048
     Dates: start: 20090121
  2. MYFORTIC [Suspect]
     Indication: PROPHYLAXIS AGAINST TRANSPLANT REJECTION
  3. ENALAPRIL MALEATE [Concomitant]
     Indication: HYPERTENSION
     Dosage: 5 MG, DAILY
     Route: 048
     Dates: start: 20011015
  4. ENALAPRIL MALEATE [Concomitant]
     Indication: PROTEINURIA
  5. HECTOROL [Concomitant]
     Indication: BLOOD IRON DECREASED
     Dosage: 2 UG, DAILY
     Dates: start: 20011015
  6. NIFEDIPINE [Concomitant]
     Indication: BLOOD PRESSURE
     Dosage: 10 MG, PRN
     Dates: start: 20090709
  7. IRON [Concomitant]
     Indication: BLOOD IRON DECREASED
     Dosage: 300 MG, DAILY
     Route: 048
     Dates: start: 20090709
  8. MAGNESIUM OXIDE [Concomitant]
     Indication: MAGNESIUM DEFICIENCY
     Dosage: 800 MG, DAILY
     Route: 048
     Dates: start: 20091219
  9. LASIX [Concomitant]
     Indication: OEDEMA
     Dosage: 20 MG, DAILY
     Route: 048
     Dates: start: 20071003
  10. PREDNISONE [Concomitant]
     Indication: PROPHYLAXIS AGAINST TRANSPLANT REJECTION
     Dosage: 5 MG, DAILY
     Route: 048
     Dates: start: 20090820
  11. PREDNISONE [Concomitant]
     Indication: TRANSPLANT REJECTION
  12. EPOGEN [Concomitant]
     Indication: ANAEMIA
     Dosage: 4000 U, UNK
     Dates: start: 20011015, end: 20100624
  13. LIPITOR [Concomitant]
     Indication: BLOOD CHOLESTEROL INCREASED
     Dosage: 20 MG, DAILY
     Route: 048
     Dates: start: 20011015
  14. LIPITOR [Concomitant]
     Indication: HYPERLIPIDAEMIA
  15. PRILOSEC [Concomitant]
     Indication: GASTROOESOPHAGEAL REFLUX DISEASE
     Dosage: 20 MG, DAILY
     Route: 048
     Dates: start: 20080626
  16. SAIZEN [Concomitant]
     Indication: BLOOD GROWTH HORMONE DECREASED
     Dosage: 8.8 MG, DAILY
     Dates: start: 20090215
  17. PROGRAF [Concomitant]
     Indication: PROPHYLAXIS AGAINST TRANSPLANT REJECTION
     Dosage: 0.5 MG, DAILY
     Route: 048
     Dates: start: 20071003
  18. PROGRAF [Concomitant]
     Indication: TRANSPLANT REJECTION
  19. ASPIRIN [Concomitant]
     Indication: CARDIOVASCULAR EVENT PROPHYLAXIS
     Dosage: 81 MG, DAILY
     Dates: start: 20100111
  20. SEVELAMER [Concomitant]
     Indication: BLOOD PHOSPHORUS INCREASED
     Dosage: 800 MG, PRN
     Dates: start: 20100316

REACTIONS (4)
  - GASTRITIS [None]
  - H1N1 INFLUENZA [None]
  - KIDNEY TRANSPLANT REJECTION [None]
  - RENAL TRANSPLANT [None]
